FAERS Safety Report 8958982 (Version 2)
Quarter: 2014Q2

REPORT INFORMATION
  Report Type: Report from Study
  Country: JP (occurrence: JP)
  Receive Date: 20121211
  Receipt Date: 20131018
  Transmission Date: 20141212
  Serious: Yes (Hospitalization)
  Sender: FDA-Public Use
  Company Number: JP-PFIZER INC-2012308234

PATIENT
  Age: 25 Year
  Sex: Female
  Weight: 50.9 kg

DRUGS (7)
  1. METHOTREXATE SODIUM [Suspect]
     Dosage: 15 MG, WEEKLY
     Dates: start: 20070419
  2. METHYLPREDNISOLONE [Suspect]
     Dosage: 2 MG, 1X/DAY
     Dates: start: 20080821
  3. OCRELIZUMAB [Suspect]
     Indication: RHEUMATOID ARTHRITIS
     Dosage: DATE OF LAST DOSE PRIOR TO SAE: 8OCTOBER2008. DAY 1 AND DAY 15 INFUSION (200 MG)
     Route: 042
     Dates: start: 20080925
  4. PREDNISOLONE [Suspect]
     Dosage: 1.5 MG, 1X/DAY
     Dates: start: 20080307
  5. FOLIC ACID [Concomitant]
     Dosage: 5 MG, WEEKLY
     Dates: start: 20070419
  6. RABEPRAZOLE SODIUM [Concomitant]
     Dosage: 10 MG, DAILY
     Dates: start: 20070419
  7. MELOXICAM [Concomitant]
     Dosage: 10 MG, UNK
     Dates: start: 20070419

REACTIONS (1)
  - Enterocolitis viral [Recovered/Resolved]
